FAERS Safety Report 14964324 (Version 2)
Quarter: 2018Q3

REPORT INFORMATION
  Report Type: Spontaneous
  Country: US (occurrence: US)
  Receive Date: 20180601
  Receipt Date: 20180725
  Transmission Date: 20181010
  Serious: No
  Sender: FDA-Public Use
  Company Number: US-LEXICON PHARMACEUTICALS, INC-18-1606-00647

PATIENT
  Age: 82 Year
  Sex: Female

DRUGS (33)
  1. OCTREOTIDE ACETATE. [Concomitant]
     Active Substance: OCTREOTIDE ACETATE
  2. HYDROCHLOROTHIAZIDE. [Concomitant]
     Active Substance: HYDROCHLOROTHIAZIDE
     Route: 048
  3. LOSARTAN. [Concomitant]
     Active Substance: LOSARTAN
     Route: 048
  4. PAPAYA ENZYME [Concomitant]
     Route: 048
  5. TELOTRISTAT ETHYL [Suspect]
     Active Substance: TELOTRISTAT ETHYL
     Indication: CARCINOID SYNDROME
  6. ACYCLOVIR. [Concomitant]
     Active Substance: ACYCLOVIR
     Route: 048
  7. DIAZEPAM. [Concomitant]
     Active Substance: DIAZEPAM
     Route: 048
  8. METHOCARBAMOL. [Concomitant]
     Active Substance: METHOCARBAMOL
     Route: 048
  9. FEXOFENADINE [Concomitant]
     Active Substance: FEXOFENADINE\FEXOFENADINE HYDROCHLORIDE
     Route: 048
  10. GAS?X [Concomitant]
     Active Substance: DIMETHICONE
     Route: 048
  11. UBIQUINOL [Concomitant]
     Active Substance: UBIQUINOL
     Route: 048
  12. VALACYCLOVIR [Concomitant]
     Active Substance: VALACYCLOVIR HYDROCHLORIDE
     Route: 048
  13. TELOTRISTAT ETHYL [Suspect]
     Active Substance: TELOTRISTAT ETHYL
     Indication: CARCINOID TUMOUR
     Route: 048
     Dates: start: 20180423, end: 20180521
  14. OCTREOTIDE ACETATE. [Concomitant]
     Active Substance: OCTREOTIDE ACETATE
     Route: 030
  15. ATENOLOL. [Concomitant]
     Active Substance: ATENOLOL
     Route: 048
  16. CULTURELLE DIGESTIVE HEALTH [Concomitant]
     Route: 048
  17. VITEX EXTRACT [Concomitant]
  18. IBUPROFEN. [Concomitant]
     Active Substance: IBUPROFEN
     Route: 048
  19. KETOPROFEN. [Concomitant]
     Active Substance: KETOPROFEN
     Route: 048
  20. NITROGLYCERIN. [Concomitant]
     Active Substance: NITROGLYCERIN
  21. CONJUGATED ESTROGEN [Concomitant]
     Active Substance: ESTROGENS, CONJUGATED
     Route: 067
  22. ONDANSETRON [Concomitant]
     Active Substance: ONDANSETRON
  23. VITAMIN D3 [Concomitant]
     Active Substance: CHOLECALCIFEROL
     Route: 048
  24. TELOTRISTAT ETHYL [Suspect]
     Active Substance: TELOTRISTAT ETHYL
     Indication: CARCINOID TUMOUR OF THE SMALL BOWEL
     Route: 048
     Dates: start: 20170719, end: 2017
  25. COENZYME Q10 [Concomitant]
     Active Substance: UBIDECARENONE
     Route: 048
  26. ESTRACE [Concomitant]
     Active Substance: ESTRADIOL
     Route: 067
  27. PREVIDENT [Concomitant]
     Active Substance: SODIUM FLUORIDE
  28. TELOTRISTAT ETHYL [Suspect]
     Active Substance: TELOTRISTAT ETHYL
     Indication: CARCINOID TUMOUR
  29. ACETAMINOPHEN. [Concomitant]
     Active Substance: ACETAMINOPHEN
     Route: 048
  30. CHLORHEXIDINE [Concomitant]
     Active Substance: CHLORHEXIDINE
  31. DIPHENHYDRAMINE. [Concomitant]
     Active Substance: DIPHENHYDRAMINE
     Route: 048
  32. FUROSEMIDE. [Concomitant]
     Active Substance: FUROSEMIDE
     Route: 048
  33. TURMERIC ROOT [Concomitant]
     Route: 048

REACTIONS (2)
  - Arthralgia [Not Recovered/Not Resolved]
  - Inflammation [Not Recovered/Not Resolved]

NARRATIVE: CASE EVENT DATE: 20170719
